FAERS Safety Report 17920107 (Version 1)
Quarter: 2020Q2

REPORT INFORMATION
  Report Type: Spontaneous
  Country: FR (occurrence: FR)
  Receive Date: 20200620
  Receipt Date: 20200620
  Transmission Date: 20200714
  Serious: Yes (Life-Threatening, Hospitalization)
  Sender: FDA-Public Use
  Company Number: FR-ACCORD-186218

PATIENT
  Age: 52 Year
  Sex: Female

DRUGS (4)
  1. TEMESTA (LORAZEPAM) [Interacting]
     Active Substance: LORAZEPAM
     Indication: MENTAL DISORDER
     Dosage: STRENGTH-2.5 MG, SCORED TABLET
     Route: 048
     Dates: start: 20200423, end: 20200503
  2. ARIPIPRAZOLE. [Suspect]
     Active Substance: ARIPIPRAZOLE
     Indication: MENTAL DISORDER
     Route: 048
     Dates: start: 20200501, end: 20200503
  3. NOCTAMIDE [Concomitant]
     Active Substance: LORMETAZEPAM
     Indication: MENTAL DISORDER
     Dosage: STRENGTH-2 MG, SCORED TABLET
  4. LOXAPAC [Interacting]
     Active Substance: LOXAPINE
     Indication: MENTAL DISORDER
     Dosage: STRENGTH-50 MG
     Route: 048
     Dates: start: 20200123, end: 20200503

REACTIONS (2)
  - Drug interaction [Unknown]
  - Neuroleptic malignant syndrome [Recovered/Resolved]

NARRATIVE: CASE EVENT DATE: 20200503
